FAERS Safety Report 8883358 (Version 1)
Quarter: 2012Q4

REPORT INFORMATION
  Report Type: 
  Country: CN (occurrence: CN)
  Receive Date: 20121102
  Receipt Date: 20121102
  Transmission Date: 20130627
  Serious: Yes (Other)
  Sender: FDA-Public Use
  Company Number: CN-JNJFOC-20121012702

PATIENT

DRUGS (7)
  1. XARELTO [Suspect]
     Indication: THROMBOSIS PROPHYLAXIS
     Route: 048
  2. XARELTO [Suspect]
     Indication: THROMBOSIS PROPHYLAXIS
     Route: 048
     Dates: start: 20120725, end: 20120726
  3. XARELTO [Suspect]
     Indication: KNEE ARTHROPLASTY
     Route: 048
  4. XARELTO [Suspect]
     Indication: KNEE ARTHROPLASTY
     Route: 048
     Dates: start: 20120725, end: 20120726
  5. CLINDAMYCIN [Concomitant]
     Route: 065
  6. CEFTEZOLE SODIUM [Concomitant]
     Route: 065
  7. DICLOFENAC [Concomitant]
     Route: 065

REACTIONS (2)
  - Swelling [Recovered/Resolved]
  - Wound haemorrhage [Unknown]
